FAERS Safety Report 22271894 (Version 1)
Quarter: 2023Q2

REPORT INFORMATION
  Report Type: Report from Study
  Country: US (occurrence: None)
  Receive Date: 20230502
  Receipt Date: 20230502
  Transmission Date: 20230722
  Serious: Yes (Hospitalization, Other)
  Sender: FDA-Public Use
  Company Number: 2023A095930

PATIENT
  Sex: Female

DRUGS (1)
  1. FARXIGA [Suspect]
     Active Substance: DAPAGLIFLOZIN PROPANEDIOL
     Route: 048

REACTIONS (7)
  - Pyrexia [Unknown]
  - Hallucination [Unknown]
  - Urinary tract infection [Unknown]
  - Kidney infection [Unknown]
  - Sepsis [Unknown]
  - Product use issue [Unknown]
  - Intentional dose omission [Unknown]
